FAERS Safety Report 5599332-3 (Version None)
Quarter: 2008Q1

REPORT INFORMATION
  Report Type: 
  Country: None (occurrence: None)
  Receive Date: 20080122
  Receipt Date: 20080111
  Transmission Date: 20080703
  Serious: Yes (Other)
  Sender: FDA-Public Use
  Company Number: FR-PFIZER INC-2007101058

PATIENT
  Sex: Female
  Weight: 60 kg

DRUGS (6)
  1. TAHOR [Suspect]
     Indication: ANGIOPLASTY
     Route: 048
     Dates: start: 20070922, end: 20071011
  2. TAHOR [Suspect]
     Indication: ACUTE CORONARY SYNDROME
  3. ALL OTHER THERAPEUTIC PRODUCTS [Concomitant]
  4. BETA BLOCKING AGENTS [Concomitant]
  5. KARDEGIC [Concomitant]
  6. PLAVIX [Concomitant]

REACTIONS (1)
  - CYTOLYTIC HEPATITIS [None]
